FAERS Safety Report 5044684-6 (Version None)
Quarter: 2006Q3

REPORT INFORMATION
  Report Type: 
  Country: None (occurrence: None)
  Receive Date: 20060706
  Receipt Date: 20060616
  Transmission Date: 20061208
  Serious: Yes (Hospitalization)
  Sender: FDA-Public Use
  Company Number: JP-MERCK-0606USA04174

PATIENT
  Age: 9 Year
  Sex: Male

DRUGS (6)
  1. PEPCID [Suspect]
     Indication: PROPHYLAXIS AGAINST GASTROINTESTINAL ULCER
     Route: 042
     Dates: start: 20060606, end: 20060611
  2. PEPCID [Suspect]
     Route: 042
     Dates: start: 20060612, end: 20060614
  3. PEPCID [Suspect]
     Route: 042
     Dates: start: 20060615, end: 20060615
  4. IRINOTECAN HCL [Suspect]
     Indication: NEUROBLASTOMA
     Route: 065
     Dates: start: 20060530, end: 20060603
  5. PENTCILLIN [Concomitant]
     Indication: INFECTION PROPHYLAXIS
     Route: 065
     Dates: start: 20060602, end: 20060607
  6. KYTRIL [Concomitant]
     Indication: NAUSEA
     Route: 042
     Dates: start: 20060529, end: 20060612

REACTIONS (6)
  - BLOOD PRESSURE INCREASED [None]
  - DISSEMINATED INTRAVASCULAR COAGULATION [None]
  - HEPATIC FUNCTION ABNORMAL [None]
  - REVERSIBLE POSTERIOR LEUKOENCEPHALOPATHY SYNDROME [None]
  - RHABDOMYOLYSIS [None]
  - VARICELLA [None]
